FAERS Safety Report 4512379-0 (Version None)
Quarter: 2004Q4

REPORT INFORMATION
  Report Type: 
  Country: None (occurrence: None)
  Receive Date: 20041123
  Receipt Date: 20041115
  Transmission Date: 20050328
  Serious: Yes (Hospitalization)
  Sender: FDA-Public Use
  Company Number: 2004AP05566

PATIENT
  Age: 76 Year
  Sex: Female

DRUGS (3)
  1. XYLOCAINE [Suspect]
     Indication: LOCAL ANAESTHESIA
     Dosage: 32 MG DAILY OP
     Route: 061
     Dates: start: 20041025, end: 20041025
  2. XYLOCAINE VISCOUS [Suspect]
     Indication: LOCAL ANAESTHESIA
     Dosage: 80 MG DAILY PO
     Route: 048
     Dates: start: 20041025, end: 20041025
  3. BUSCOPAN [Concomitant]

REACTIONS (1)
  - ANAPHYLACTIC SHOCK [None]
